FAERS Safety Report 9629552 (Version 2)
Quarter: 2013Q4

REPORT INFORMATION
  Report Type: Spontaneous
  Country: US (occurrence: US)
  Receive Date: 20131017
  Receipt Date: 20131223
  Transmission Date: 20140711
  Serious: Yes (Other)
  Sender: FDA-Public Use
  Company Number: US-ELI_LILLY_AND_COMPANY-US201310002026

PATIENT
  Sex: Female
  Weight: 122.45 kg

DRUGS (2)
  1. INSULIN HUMAN [Suspect]
     Indication: DIABETES MELLITUS
     Dosage: 20 U, QD
  2. INSULIN HUMAN [Suspect]
     Dosage: 30 U, EACH EVENING

REACTIONS (9)
  - Renal impairment [Unknown]
  - Atrial fibrillation [Unknown]
  - Hypoglycaemia [Recovered/Resolved]
  - Urine output decreased [Unknown]
  - Fluid retention [Unknown]
  - Feeling hot [Unknown]
  - Hyperhidrosis [Unknown]
  - Dehydration [Unknown]
  - Blood glucose decreased [Unknown]
